FAERS Safety Report 16566609 (Version 1)
Quarter: 2019Q3

REPORT INFORMATION
  Report Type: Spontaneous
  Country: CA (occurrence: CA)
  Receive Date: 20190712
  Receipt Date: 20190712
  Transmission Date: 20191004
  Serious: Yes (Hospitalization, Other)
  Sender: FDA-Public Use
  Company Number: CA-PFIZER INC-2019292108

PATIENT
  Age: 24 Year
  Sex: Male
  Weight: 52 kg

DRUGS (10)
  1. MARIJUANA [Concomitant]
     Active Substance: CANNABIS SATIVA SUBSP. INDICA TOP
     Dosage: UNK
  2. VENLAFAXINE HCL [Suspect]
     Active Substance: VENLAFAXINE HYDROCHLORIDE
     Dosage: UNK
  3. IMURAN [Concomitant]
     Active Substance: AZATHIOPRINE
     Dosage: 50 MG, 1X/DAY
  4. SODIUM ALGINATE/SODIUM BICARBONATE [Concomitant]
     Dosage: UNK
  5. CLONAZEPAM. [Concomitant]
     Active Substance: CLONAZEPAM
     Dosage: UNK
  6. DILTIAZEM. [Concomitant]
     Active Substance: DILTIAZEM
     Dosage: UNK
  7. QUETIAPINE FUMARATE. [Suspect]
     Active Substance: QUETIAPINE FUMARATE
     Dosage: UNK
  8. IMURAN [Concomitant]
     Active Substance: AZATHIOPRINE
     Dosage: 100 MG, UNK
  9. PREDNISONE. [Concomitant]
     Active Substance: PREDNISONE
     Dosage: 20 MG, 2X/DAY
     Route: 048
  10. PREDNISONE. [Concomitant]
     Active Substance: PREDNISONE
     Dosage: UNK
     Route: 048

REACTIONS (10)
  - Chest pain [Recovering/Resolving]
  - Crohn^s disease [Recovering/Resolving]
  - Rectal fissure [Recovering/Resolving]
  - Odynophagia [Recovering/Resolving]
  - Poor quality sleep [Recovering/Resolving]
  - Agitation [Recovering/Resolving]
  - Anal incontinence [Recovering/Resolving]
  - Cough [Recovering/Resolving]
  - Drug withdrawal syndrome [Recovering/Resolving]
  - Gallbladder polyp [Recovering/Resolving]
